FAERS Safety Report 23989789 (Version 2)
Quarter: 2024Q3

REPORT INFORMATION
  Report Type: Spontaneous
  Country: OM (occurrence: OM)
  Receive Date: 20240619
  Receipt Date: 20240703
  Transmission Date: 20241017
  Serious: Yes (Other)
  Sender: PFIZER
  Company Number: OM-PFIZER INC-PV202400078513

PATIENT
  Age: 51 Year

DRUGS (4)
  1. DEPO-MEDROL [Suspect]
     Active Substance: METHYLPREDNISOLONE ACETATE
     Indication: Osteoarthritis
     Dosage: UNK
     Route: 014
     Dates: start: 202406
  2. DEPO-MEDROL [Suspect]
     Active Substance: METHYLPREDNISOLONE ACETATE
     Dosage: UNK
     Route: 014
     Dates: start: 20240612, end: 20240612
  3. LIDOCAINE [Concomitant]
     Active Substance: LIDOCAINE
     Indication: Osteoarthritis
     Dosage: UNK
     Route: 014
     Dates: start: 202406
  4. LIDOCAINE [Concomitant]
     Active Substance: LIDOCAINE
     Dosage: 3 ML
     Route: 014
     Dates: start: 20240612, end: 20240612

REACTIONS (4)
  - Suspected counterfeit product [Not Recovered/Not Resolved]
  - Product complaint [Not Recovered/Not Resolved]
  - Injection site joint pain [Not Recovered/Not Resolved]
  - Injection site joint swelling [Not Recovered/Not Resolved]

NARRATIVE: CASE EVENT DATE: 20240612
